FAERS Safety Report 7833788-8 (Version None)
Quarter: 2011Q4

REPORT INFORMATION
  Report Type: 
  Country: None (occurrence: None)
  Receive Date: 20111020
  Receipt Date: 20111006
  Transmission Date: 20120403
  Serious: Yes (Life-Threatening, Other)
  Sender: FDA-Public Use
  Company Number: LTI2011A00189

PATIENT
  Age: 76 Year
  Sex: Male

DRUGS (5)
  1. ACTOS [Suspect]
     Indication: TYPE 2 DIABETES MELLITUS
     Dosage: 1 TAB. (1 TAB., D), ORAL
     Route: 048
     Dates: end: 20110310
  2. PANTOPRAZOLE [Concomitant]
  3. GLUCOVANCE [Concomitant]
  4. ATORVASTATIN CALCIUM [Concomitant]
  5. PLAVIX [Concomitant]

REACTIONS (1)
  - BLADDER CANCER [None]
